FAERS Safety Report 13737649 (Version 2)
Quarter: 2018Q2

REPORT INFORMATION
  Report Type: Report from Study
  Country: US (occurrence: US)
  Receive Date: 20170710
  Receipt Date: 20180627
  Transmission Date: 20180711
  Serious: Yes (Other)
  Sender: FDA-Public Use
  Company Number: US-SAOL THERAPEUTICS-2016SAO00231

PATIENT
  Age: 61 Year
  Sex: Male
  Weight: 68.27 kg

DRUGS (36)
  1. COMPOUNDED BACLOFEN [Suspect]
     Active Substance: BACLOFEN
     Dosage: 150.18 ?G, \DAY
     Route: 037
     Dates: start: 20151125
  2. COMPOUNDED BACLOFEN [Suspect]
     Active Substance: BACLOFEN
     Dosage: 109.97 ?G, \DAY
     Route: 037
  3. CLONIDINE. [Suspect]
     Active Substance: CLONIDINE
     Dosage: 100.12 ?G, \DAY
     Dates: start: 20151123
  4. BUPIVACAINE. [Suspect]
     Active Substance: BUPIVACAINE
     Dosage: 20.041 ?G, \DAY
     Dates: start: 20151125
  5. DILAUDID [Suspect]
     Active Substance: HYDROMORPHONE HYDROCHLORIDE
     Dosage: 0.549 MG, \DAY
     Route: 037
  6. CLONIDINE. [Suspect]
     Active Substance: CLONIDINE
     Dosage: 133.61 ?G, \DAY
     Route: 037
     Dates: start: 20151029
  7. BUPIVACAINE. [Suspect]
     Active Substance: BUPIVACAINE
     Dosage: 10.997 MG, \DAY
     Route: 037
  8. DILAUDID [Suspect]
     Active Substance: HYDROMORPHONE HYDROCHLORIDE
     Dosage: 0.851 MG, \DAY
     Route: 037
     Dates: start: 20150813
  9. COMPOUNDED BACLOFEN [Suspect]
     Active Substance: BACLOFEN
     Dosage: 200.41 ?G, \DAY
     Route: 037
     Dates: start: 20150924
  10. CLONIDINE. [Suspect]
     Active Substance: CLONIDINE
     Dosage: UNK
     Route: 037
  11. CLONIDINE. [Suspect]
     Active Substance: CLONIDINE
     Dosage: 113.47 ?G, \DAY
     Route: 037
     Dates: start: 20150813
  12. DILAUDID [Suspect]
     Active Substance: HYDROMORPHONE HYDROCHLORIDE
     Dosage: 1.002 MG, \DAY
     Route: 037
     Dates: start: 20150924
  13. COMPOUNDED BACLOFEN [Suspect]
     Active Substance: BACLOFEN
     Dosage: 200.41 ?G, \DAY
     Dates: start: 20151125
  14. COMPOUNDED BACLOFEN [Suspect]
     Active Substance: BACLOFEN
     Dosage: 150.18 ?G, \DAY
     Route: 037
     Dates: start: 20151125
  15. CLONIDINE. [Suspect]
     Active Substance: CLONIDINE
     Dosage: 100.12 ?G, \DAY
     Route: 037
     Dates: start: 20151123
  16. BUPIVACAINE. [Suspect]
     Active Substance: BUPIVACAINE
     Dosage: 5.018 MG, \DAY
     Route: 037
     Dates: start: 20151125
  17. BUPIVACAINE. [Suspect]
     Active Substance: BUPIVACAINE
     Dosage: 15.018 MG, \DAY
     Route: 037
     Dates: start: 20151123
  18. DILAUDID [Suspect]
     Active Substance: HYDROMORPHONE HYDROCHLORIDE
     Dosage: 1.002 MG, \DAY
     Dates: start: 20151125
  19. COMPOUNDED BACLOFEN [Suspect]
     Active Substance: BACLOFEN
     Indication: PAIN
     Dosage: UNK
     Route: 037
  20. COMPOUNDED BACLOFEN [Suspect]
     Active Substance: BACLOFEN
     Dosage: 150.18 ?G, \DAY
     Dates: start: 20151123
  21. CLONIDINE. [Suspect]
     Active Substance: CLONIDINE
     Dosage: 111.08 ?G, \DAY
     Route: 037
  22. BUPIVACAINE. [Suspect]
     Active Substance: BUPIVACAINE
     Dosage: 15.018 MG, \DAY
     Route: 037
     Dates: start: 20151125
  23. COMPOUNDED BACLOFEN [Suspect]
     Active Substance: BACLOFEN
     Dosage: 170.21 ?G, \DAY
     Route: 037
     Dates: start: 20150813
  24. COMPOUNDED BACLOFEN [Suspect]
     Active Substance: BACLOFEN
     Dosage: 140.15 ?G, \DAY
     Route: 037
     Dates: start: 20150630
  25. COMPOUNDED BACLOFEN [Suspect]
     Active Substance: BACLOFEN
     Dosage: 166.2 ?G, \DAY
     Route: 037
  26. CLONIDINE. [Suspect]
     Active Substance: CLONIDINE
     Dosage: 73.31 ?G, \DAY
     Route: 037
  27. BUPIVACAINE. [Suspect]
     Active Substance: BUPIVACAINE
     Dosage: 17.021 MG, \DAY
     Route: 037
     Dates: start: 20150813
  28. BUPIVACAINE. [Suspect]
     Active Substance: BUPIVACAINE
     Dosage: 16.662 MG, \DAY
     Route: 037
  29. DILAUDID [Suspect]
     Active Substance: HYDROMORPHONE HYDROCHLORIDE
     Dosage: 0.701 MG, \DAY
     Route: 037
     Dates: start: 20150630
  30. BUPIVACAINE. [Suspect]
     Active Substance: BUPIVACAINE
     Dosage: UNK
     Route: 037
  31. BUPIVACAINE. [Suspect]
     Active Substance: BUPIVACAINE
     Dosage: 14.015 MG, \DAY
     Route: 037
     Dates: start: 20150630
  32. DILAUDID [Suspect]
     Active Substance: HYDROMORPHONE HYDROCHLORIDE
     Dosage: 0.751 ?G, \DAY
     Route: 037
     Dates: start: 20151123
  33. CLONIDINE. [Suspect]
     Active Substance: CLONIDINE
     Dosage: 93.43 ?G, \DAY
     Route: 037
     Dates: start: 20150630
  34. BUPIVACAINE. [Suspect]
     Active Substance: BUPIVACAINE
     Dosage: 20.041 MG, \DAY
     Route: 037
     Dates: start: 20150924
  35. DILAUDID [Suspect]
     Active Substance: HYDROMORPHONE HYDROCHLORIDE
     Dosage: 0.833 MG, \DAY
     Route: 037
  36. DILAUDID [Suspect]
     Active Substance: HYDROMORPHONE HYDROCHLORIDE
     Dosage: 0.759 MG, \DAY
     Route: 037
     Dates: start: 20151125

REACTIONS (9)
  - Dizziness [Unknown]
  - Overdose [Unknown]
  - Radicular pain [Unknown]
  - Infusion site mass [Recovered/Resolved]
  - Pain [Unknown]
  - Vomiting [Unknown]
  - Burning sensation [Unknown]
  - Nausea [Unknown]
  - Therapeutic response decreased [Recovered/Resolved]

NARRATIVE: CASE EVENT DATE: 20150617
